FAERS Safety Report 24854485 (Version 1)
Quarter: 2025Q1

REPORT INFORMATION
  Report Type: Spontaneous
  Country: PT (occurrence: PT)
  Receive Date: 20250117
  Receipt Date: 20250117
  Transmission Date: 20250409
  Serious: Yes (Other)
  Sender: AUROBINDO
  Company Number: PT-PFIZER INC-PV202400169777

PATIENT
  Age: 20 Year
  Sex: Male

DRUGS (1)
  1. VORICONAZOLE [Suspect]
     Active Substance: VORICONAZOLE
     Indication: Bronchopulmonary aspergillosis
     Route: 065

REACTIONS (2)
  - Photosensitivity reaction [Recovering/Resolving]
  - Chronic cutaneous lupus erythematosus [Recovering/Resolving]
